FAERS Safety Report 4530841-1 (Version None)
Quarter: 2004Q4

REPORT INFORMATION
  Report Type: 
  Country: None (occurrence: None)
  Receive Date: 20041215
  Receipt Date: 20041201
  Transmission Date: 20050328
  Serious: Yes (Hospitalization)
  Sender: FDA-Public Use
  Company Number: MEDI-0002500

PATIENT
  Age: 62 Year
  Sex: Male
  Weight: 82.5 kg

DRUGS (12)
  1. ETHYOL [Suspect]
     Dosage: SUBCUTANEOUS
     Route: 058
     Dates: start: 20041118, end: 20041129
  2. PANTROPRAZOLE (PANTOPRAZOLE) [Concomitant]
  3. ZOLPIDEM TARTRATE [Concomitant]
  4. PROPOXYPHENE (DEXTROPROPOXYPHENE) [Concomitant]
  5. ZOCOR [Concomitant]
  6. XYLOXYLIN SUSPENSION [Concomitant]
  7. MAGNESIUM SULFATE [Concomitant]
  8. LIDOCAINE [Concomitant]
  9. ALOE VERA [Concomitant]
  10. ATARAX [Concomitant]
  11. COMPAZINE [Concomitant]
  12. ACETYLSALICYLIC ACID SRT [Concomitant]

REACTIONS (8)
  - CHILLS [None]
  - ERYTHEMA [None]
  - MYOCARDIAL INFARCTION [None]
  - NAUSEA [None]
  - PYREXIA [None]
  - RASH [None]
  - RASH PUSTULAR [None]
  - VOMITING [None]
